FAERS Safety Report 21034323 (Version 2)
Quarter: 2022Q3

REPORT INFORMATION
  Report Type: Spontaneous
  Country: RU (occurrence: RU)
  Receive Date: 20220701
  Receipt Date: 20220712
  Transmission Date: 20221027
  Serious: Yes (Other)
  Sender: FDA-Public Use
  Company Number: RU-Merck Healthcare KGaA-9332701

PATIENT
  Age: 44 Year
  Sex: Male

DRUGS (6)
  1. ERBITUX [Suspect]
     Active Substance: CETUXIMAB
     Indication: Oropharyngeal cancer stage IV
     Dosage: UNK UNK, OTHER (4 COURSES)
     Route: 042
     Dates: start: 202003, end: 202004
  2. ERBITUX [Suspect]
     Active Substance: CETUXIMAB
     Dosage: 400 MG/M2, WEEKLY (1/W)
     Route: 042
     Dates: start: 202005
  3. ERBITUX [Suspect]
     Active Substance: CETUXIMAB
     Dosage: 250 MG/M2, WEEKLY (1/W)
     Route: 042
  4. CISPLATIN [Suspect]
     Active Substance: CISPLATIN
     Indication: Oropharyngeal cancer stage IV
     Dosage: 75 MG/M2, OTHER (21 DAYS)
     Route: 065
     Dates: start: 201912, end: 202002
  5. CISPLATIN [Suspect]
     Active Substance: CISPLATIN
     Dosage: 75 MG/M2, OTHER  (21 DAYS)
     Route: 065
     Dates: start: 202005
  6. DOCETAXEL [Concomitant]
     Active Substance: DOCETAXEL
     Indication: Oropharyngeal cancer stage IV
     Dosage: 75 MG/M2, UNKNOWN
     Dates: start: 202005

REACTIONS (1)
  - Neutropenia [Recovered/Resolved]

NARRATIVE: CASE EVENT DATE: 20200501
